FAERS Safety Report 9281840 (Version 1)
Quarter: 2013Q2

REPORT INFORMATION
  Report Type: Spontaneous
  Country: DE (occurrence: DE)
  Receive Date: 20130510
  Receipt Date: 20130510
  Transmission Date: 20140414
  Serious: Yes (Congenital Anomaly)
  Sender: FDA-Public Use
  Company Number: DE-RANBAXY-2013RR-68576

PATIENT
  Sex: Male
  Weight: .61 kg

DRUGS (6)
  1. IBUPROFEN [Suspect]
     Indication: MATERNAL EXPOSURE TIMING UNSPECIFIED
     Dosage: 300 MG/DAY/ PRECONCEPTIONAL 1200 MG/DAY
     Route: 064
     Dates: start: 20120301, end: 20120925
  2. DAIVOBET [Concomitant]
     Indication: MATERNAL EXPOSURE TIMING UNSPECIFIED
     Dosage: SMALL-AREA, 0.-10. GESTATIONAL WEEK
     Route: 064
     Dates: start: 20120201
  3. FOLIO FORTE [Concomitant]
     Indication: MATERNAL EXPOSURE TIMING UNSPECIFIED
     Dosage: 0.8 MG/DAY, 0.-27. GESTATIONAL WEEK, (BIS 0.4), ALSO PRECONCEPTIONAL
     Route: 064
     Dates: start: 20120201
  4. KADEFUNGIN 3 [Concomitant]
     Indication: MATERNAL EXPOSURE TIMING UNSPECIFIED
     Dosage: 20 MG/DAY
     Route: 064
  5. MIFEGYNE [Concomitant]
     Indication: MATERNAL EXPOSURE TIMING UNSPECIFIED
     Dosage: UNK, 33.6.-33.6. GESTATIONAL WEEK
     Route: 064
     Dates: start: 20120925, end: 20120925
  6. CYTOTEC [Concomitant]
     Indication: MATERNAL EXPOSURE TIMING UNSPECIFIED
     Dosage: UNK, 33.6.-33.6. GESTATIONAL WEEK
     Route: 064
     Dates: start: 20120925, end: 20120925

REACTIONS (3)
  - Foetal growth restriction [Not Recovered/Not Resolved]
  - Ventricular septal defect [Not Recovered/Not Resolved]
  - Skeletal dysplasia [Not Recovered/Not Resolved]
